FAERS Safety Report 8147798-7 (Version None)
Quarter: 2012Q1

REPORT INFORMATION
  Report Type: 
  Country: None (occurrence: None)
  Receive Date: 20120218
  Receipt Date: 20110321
  Transmission Date: 20120608
  Serious: No
  Sender: FDA-Public Use
  Company Number: US-ALLERGAN-1103934US

PATIENT
  Age: 48 Year
  Sex: Female

DRUGS (9)
  1. BOTOX COSMETIC [Suspect]
  2. BOTOX COSMETIC [Suspect]
     Indication: SKIN WRINKLING
     Dosage: 100 UNITS, SINGLE
     Route: 030
     Dates: start: 20110311, end: 20110311
  3. BOTOX COSMETIC [Suspect]
  4. BOTOX COSMETIC [Suspect]
  5. BOTOX COSMETIC [Suspect]
  6. BOTOX COSMETIC [Suspect]
  7. BOTOX COSMETIC [Suspect]
  8. BOTOX COSMETIC [Suspect]
  9. SPRAY TAN [Concomitant]
     Indication: SKIN WRINKLING
     Dosage: UNK
     Route: 061
     Dates: start: 20110311

REACTIONS (2)
  - WRONG TECHNIQUE IN DRUG USAGE PROCESS [None]
  - SWELLING FACE [None]
